FAERS Safety Report 10155021 (Version 3)
Quarter: 2014Q3

REPORT INFORMATION
  Report Type: Report from Study
  Country: BR (occurrence: BR)
  Receive Date: 20140506
  Receipt Date: 20140709
  Transmission Date: 20150326
  Serious: Yes (Other)
  Sender: FDA-Public Use
  Company Number: PHHY2013BR138582

PATIENT
  Age: 43 Year
  Sex: Female
  Weight: 101 kg

DRUGS (12)
  1. SANDOSTATIN LAR DEPOT [Suspect]
     Active Substance: OCTREOTIDE ACETATE
     Indication: ACROMEGALY
     Dosage: UNK UKN, UNK
     Route: 030
  2. DIPYRONE [Suspect]
     Active Substance: DIPYRONE
     Dosage: UNK UKN, UNK
  3. ATENOLOL. [Concomitant]
     Active Substance: ATENOLOL
     Indication: HYPERTENSION
     Dosage: 1 DF DAILY
  4. HYDROCHLOROTHIAZIDE. [Concomitant]
     Active Substance: HYDROCHLOROTHIAZIDE
     Indication: HYPERTENSION
     Dosage: 1 DF DAILY
  5. METFORMIN [Concomitant]
     Active Substance: METFORMIN HYDROCHLORIDE
     Indication: DIABETES MELLITUS
     Dosage: 1 DF DAILY
  6. INSULIN [Concomitant]
     Active Substance: INSULIN NOS
     Indication: DIABETES MELLITUS
     Dosage: 1 APPLICATION IN THE MORNING AND ANOTHER ONE AT NIGHT
  7. PARACETAMOL [Concomitant]
     Active Substance: ACETAMINOPHEN
     Indication: PAIN
     Dosage: UNK UKN, PRN
  8. CABERGOLINE. [Concomitant]
     Active Substance: CABERGOLINE
     Dosage: UNK UKN, UNK
  9. AMLODIPINE [Concomitant]
     Active Substance: AMLODIPINE BESYLATE
     Indication: HYPERTENSION
     Dosage: 1 DF DAILY
  10. SANDOSTATIN LAR DEPOT [Suspect]
     Active Substance: OCTREOTIDE ACETATE
     Indication: NEOPLASM
     Dosage: 30 MG, QMO
     Route: 030
  11. LOSARTAN [Concomitant]
     Active Substance: LOSARTAN
     Indication: HYPERTENSION
     Dosage: 3 DF DAILY
  12. DICLOFENAC [Concomitant]
     Active Substance: DICLOFENAC
     Indication: BONE PAIN
     Dosage: UNK UKN, PRN

REACTIONS (14)
  - Nervousness [Recovering/Resolving]
  - Vomiting [Recovering/Resolving]
  - Memory impairment [Not Recovered/Not Resolved]
  - Osteoarthritis [Recovering/Resolving]
  - Disorientation [Not Recovered/Not Resolved]
  - Blood pressure increased [Recovering/Resolving]
  - Nausea [Recovering/Resolving]
  - Dysstasia [Not Recovered/Not Resolved]
  - Blood pressure decreased [Recovering/Resolving]
  - Syncope [Recovering/Resolving]
  - Diabetes mellitus [Recovering/Resolving]
  - Weight increased [Not Recovered/Not Resolved]
  - Blood glucose increased [Unknown]
  - Drug ineffective [Unknown]

NARRATIVE: CASE EVENT DATE: 20140427
